FAERS Safety Report 12804382 (Version 1)
Quarter: 2016Q4

REPORT INFORMATION
  Report Type: Report from Study
  Country: US (occurrence: US)
  Receive Date: 20161003
  Receipt Date: 20161003
  Transmission Date: 20170207
  Serious: Yes (Other)
  Sender: FDA-Public Use
  Company Number: US-GILEAD-2016-0235450

PATIENT
  Age: 53 Year
  Sex: Female

DRUGS (1)
  1. LEDIPASVIR/SOFOSBUVIR [Suspect]
     Active Substance: LEDIPASVIR\SOFOSBUVIR
     Indication: HEPATITIS C
     Dosage: 1 DF, QD
     Route: 048
     Dates: start: 20160912

REACTIONS (8)
  - Dysgeusia [Unknown]
  - Hepatic cirrhosis [Unknown]
  - Attention deficit/hyperactivity disorder [Unknown]
  - Headache [Unknown]
  - Feeling abnormal [Unknown]
  - Fatigue [Unknown]
  - Diabetes mellitus [Unknown]
  - Hepatic fibrosis [Unknown]
